FAERS Safety Report 10066156 (Version 1)
Quarter: 2014Q2

REPORT INFORMATION
  Report Type: Spontaneous
  Country: US (occurrence: US)
  Receive Date: 20140408
  Receipt Date: 20140408
  Transmission Date: 20141212
  Serious: No
  Sender: FDA-Public Use
  Company Number: US-PFIZER INC-2014097263

PATIENT
  Age: 50 Year
  Sex: Female

DRUGS (20)
  1. IBUPROFEN [Suspect]
     Dosage: UNK
  2. LYRICA [Suspect]
     Dosage: UNK
  3. MORPHINE SULFATE [Suspect]
     Dosage: UNK
  4. ASPIRIN [Suspect]
     Dosage: UNK
  5. PHENERGAN [Suspect]
     Dosage: UNK
  6. CECLOR [Suspect]
     Dosage: UNK
  7. AMBIEN [Suspect]
     Dosage: UNK
  8. CEFTIN [Suspect]
     Dosage: UNK
  9. CIPRO [Suspect]
     Dosage: UNK
  10. DEPAKOTE [Suspect]
     Dosage: UNK
  11. PROZAC [Suspect]
     Dosage: UNK
  12. WELLBUTRIN [Suspect]
     Dosage: UNK
  13. REGLAN [Suspect]
     Dosage: UNK
  14. TOPAMAX [Suspect]
     Dosage: UNK
  15. IMITREX [Suspect]
     Dosage: UNK
  16. PERIDOL [Suspect]
     Dosage: UNK
  17. RECLAST INFUSION [Suspect]
     Dosage: UNK
  18. CRESTOR [Suspect]
     Dosage: UNK
  19. DICYCLOMINE [Suspect]
     Dosage: UNK
  20. ZYFLO [Suspect]
     Dosage: UNK

REACTIONS (2)
  - Drug intolerance [Unknown]
  - Drug hypersensitivity [Unknown]
